FAERS Safety Report 13380116 (Version 1)
Quarter: 2017Q1

REPORT INFORMATION
  Report Type: Spontaneous
  Country: US (occurrence: US)
  Receive Date: 20170328
  Receipt Date: 20170328
  Transmission Date: 20170429
  Serious: Yes (Other)
  Sender: FDA-Public Use
  Company Number: US-ELI_LILLY_AND_COMPANY-US201608004369

PATIENT
  Age: 65 Year
  Sex: Female

DRUGS (1)
  1. CYMBALTA [Suspect]
     Active Substance: DULOXETINE HYDROCHLORIDE
     Indication: PRODUCT USED FOR UNKNOWN INDICATION
     Dosage: UNK, UNKNOWN
     Route: 048
     Dates: start: 200603, end: 20130919

REACTIONS (7)
  - Nausea [Unknown]
  - Vomiting [Unknown]
  - Hyperhidrosis [Unknown]
  - Headache [Unknown]
  - Suicidal ideation [Unknown]
  - Drug withdrawal syndrome [Unknown]
  - Anxiety [Unknown]

NARRATIVE: CASE EVENT DATE: 20131007
